FAERS Safety Report 17571040 (Version 1)
Quarter: 2020Q1

REPORT INFORMATION
  Report Type: Spontaneous
  Country: EE (occurrence: EE)
  Receive Date: 20200323
  Receipt Date: 20200323
  Transmission Date: 20200409
  Serious: Yes (Life-Threatening, Hospitalization)
  Sender: FDA-Public Use
  Company Number: EE-ACCORD-176582

PATIENT
  Age: 87 Year
  Sex: Female

DRUGS (4)
  1. ALLOPURINOL. [Suspect]
     Active Substance: ALLOPURINOL
     Indication: HYPERURICAEMIA
     Dosage: STRENGTH:100 MG
     Route: 048
     Dates: start: 20200220, end: 20200301
  2. BETASERC [Concomitant]
     Active Substance: BETAHISTINE
     Dosage: STRENGTH:24 MG, TABLETID
     Route: 048
  3. METOPROLOL. [Concomitant]
     Active Substance: METOPROLOL
     Route: 048
  4. CO-DALNESSA [Concomitant]
     Dosage: 4 MG/10 MG/1,25 MG TABLETID
     Route: 048

REACTIONS (2)
  - Rash maculo-papular [Recovered/Resolved]
  - Hypertransaminasaemia [Recovered/Resolved]

NARRATIVE: CASE EVENT DATE: 20200222
